FAERS Safety Report 8866186 (Version 17)
Quarter: 2014Q4

REPORT INFORMATION
  Report Type: Report from Study
  Country: NL (occurrence: NL)
  Receive Date: 20121025
  Receipt Date: 20141208
  Transmission Date: 20150529
  Serious: Yes (Hospitalization, Other)
  Sender: FDA-Public Use
  Company Number: PHHO2012NL015208

PATIENT
  Age: 16 Year
  Sex: Female
  Weight: 62 kg

DRUGS (14)
  1. PREDNISONE. [Suspect]
     Active Substance: PREDNISONE
     Dosage: 10 MG, BID
     Route: 065
     Dates: start: 20120521, end: 20120603
  2. PREDNISONE. [Suspect]
     Active Substance: PREDNISONE
     Dosage: 7.5 MG, QD
     Route: 065
     Dates: start: 20130426
  3. PREDNISONE. [Suspect]
     Active Substance: PREDNISONE
     Dosage: 6.25 MG, QD
     Route: 065
     Dates: start: 20121011
  4. PREDNISONE. [Suspect]
     Active Substance: PREDNISONE
     Dosage: 5 MG, QD
     Route: 065
     Dates: end: 20130425
  5. ALENDRONIC ACID [Concomitant]
     Active Substance: ALENDRONIC ACID
     Indication: JUVENILE IDIOPATHIC ARTHRITIS
     Dosage: 10 MG, QD
     Route: 065
     Dates: start: 20130202
  6. ACZ885 [Suspect]
     Active Substance: CANAKINUMAB
     Indication: JUVENILE IDIOPATHIC ARTHRITIS
     Dosage: 240 MG, UNK
     Route: 058
     Dates: start: 20100412
  7. PREDNISONE. [Suspect]
     Active Substance: PREDNISONE
     Dosage: 7.5 MG, QD
     Route: 065
     Dates: start: 20120723, end: 20121010
  8. PREDNISONE. [Suspect]
     Active Substance: PREDNISONE
     Dosage: 7.5 MG, BID
     Route: 065
     Dates: start: 20120604, end: 20120627
  9. CALCICHEW [Concomitant]
     Active Substance: CALCIUM CARBONATE
     Indication: JUVENILE IDIOPATHIC ARTHRITIS
     Dosage: 1 DF, QD
     Route: 065
     Dates: start: 20130202
  10. MACROGOL [Concomitant]
     Active Substance: POLYETHYLENE GLYCOLS
     Indication: CONSTIPATION
     Dosage: 20 MG, UNK
     Route: 065
     Dates: start: 20130204
  11. PREDNISONE. [Suspect]
     Active Substance: PREDNISONE
     Indication: PRODUCT USED FOR UNKNOWN INDICATION
     Dosage: 30 MG, UNK
     Route: 065
     Dates: start: 20120419, end: 20120506
  12. PREDNISONE. [Suspect]
     Active Substance: PREDNISONE
     Dosage: 5 MG, BID
     Route: 065
     Dates: start: 20120628, end: 20120722
  13. INDOMETACIN [Concomitant]
     Active Substance: INDOMETHACIN
     Indication: JUVENILE IDIOPATHIC ARTHRITIS
     Dosage: 25 MG, TID
     Route: 048
     Dates: start: 20130202
  14. PREDNISONE. [Suspect]
     Active Substance: PREDNISONE
     Dosage: 12.5 MG, BID
     Route: 065
     Dates: start: 20120507, end: 20120520

REACTIONS (1)
  - Gastroenteritis salmonella [Recovered/Resolved]

NARRATIVE: CASE EVENT DATE: 20120923
